FAERS Safety Report 17979678 (Version 2)
Quarter: 2020Q3

REPORT INFORMATION
  Report Type: Spontaneous
  Country: US (occurrence: US)
  Receive Date: 20200703
  Receipt Date: 20200819
  Transmission Date: 20201103
  Serious: Yes (Death, Hospitalization, Other)
  Sender: FDA-Public Use
  Company Number: US-ASTRAZENECA-2020SE83959

PATIENT
  Age: 27930 Day
  Sex: Female

DRUGS (24)
  1. ONGLYZA [Suspect]
     Active Substance: SAXAGLIPTIN HYDROCHLORIDE
     Indication: TYPE 2 DIABETES MELLITUS
     Route: 048
     Dates: start: 201206
  2. OSCAL [Concomitant]
     Active Substance: CALCIUM CARBONATE
  3. METALAZONE [Concomitant]
  4. AMBIEN [Concomitant]
     Active Substance: ZOLPIDEM TARTRATE
  5. DITROPAN [Concomitant]
     Active Substance: OXYBUTYNIN CHLORIDE
  6. ONGLYZA [Suspect]
     Active Substance: SAXAGLIPTIN HYDROCHLORIDE
     Indication: TYPE 2 DIABETES MELLITUS
     Route: 048
     Dates: start: 20121017, end: 20150730
  7. OMEPRAZOLE. [Concomitant]
     Active Substance: OMEPRAZOLE
  8. OXYBUTYNIN. [Concomitant]
     Active Substance: OXYBUTYNIN CHLORIDE
  9. NITROGLYCERIN. [Concomitant]
     Active Substance: NITROGLYCERIN
  10. METOLAZONE. [Concomitant]
     Active Substance: METOLAZONE
  11. MINOXIDIL. [Concomitant]
     Active Substance: MINOXIDIL
  12. TRAMADOL. [Concomitant]
     Active Substance: TRAMADOL
  13. ALPRAZOLAM. [Concomitant]
     Active Substance: ALPRAZOLAM
  14. BACTRIM [Concomitant]
     Active Substance: SULFAMETHOXAZOLE\TRIMETHOPRIM
  15. ATENOLOL. [Concomitant]
     Active Substance: ATENOLOL
  16. FUROSEMIDE. [Concomitant]
     Active Substance: FUROSEMIDE
  17. NIACIN. [Concomitant]
     Active Substance: NIACIN
  18. ALLOPURINOL. [Concomitant]
     Active Substance: ALLOPURINOL
  19. METALOZONE [Concomitant]
  20. PLAVIX [Concomitant]
     Active Substance: CLOPIDOGREL BISULFATE
  21. ZOLPIDEM [Concomitant]
     Active Substance: ZOLPIDEM TARTRATE
  22. ONGLYZA [Suspect]
     Active Substance: SAXAGLIPTIN HYDROCHLORIDE
     Indication: TYPE 2 DIABETES MELLITUS
     Route: 048
     Dates: start: 201308
  23. FERROUS SULFATE. [Concomitant]
     Active Substance: FERROUS SULFATE
  24. LEVEMIR [Concomitant]
     Active Substance: INSULIN DETEMIR

REACTIONS (5)
  - Acute pulmonary oedema [Fatal]
  - Hypertensive heart disease [Unknown]
  - Cardiac failure congestive [Fatal]
  - Cardiac failure [Fatal]
  - Acute myocardial infarction [Unknown]

NARRATIVE: CASE EVENT DATE: 20121017
